FAERS Safety Report 23809693 (Version 1)
Quarter: 2024Q2

REPORT INFORMATION
  Report Type: Spontaneous
  Country: CA (occurrence: CA)
  Receive Date: 20240502
  Receipt Date: 20240502
  Transmission Date: 20240715
  Serious: Yes (Hospitalization, Other)
  Sender: FDA-Public Use
  Company Number: CA-BAXTER-2022BAX024433

PATIENT
  Age: 14 Year
  Sex: Male
  Weight: 36.9 kg

DRUGS (13)
  1. CYCLOPHOSPHAMIDE [Suspect]
     Active Substance: CYCLOPHOSPHAMIDE
     Indication: Neuroblastoma
     Dosage: UNK
     Route: 065
     Dates: start: 20170602, end: 20171001
  2. CYCLOPHOSPHAMIDE [Suspect]
     Active Substance: CYCLOPHOSPHAMIDE
     Indication: Recurrent cancer
     Dosage: 330 MG, MAXIMUM 5 DAYS EVERY 21 DAYS, EVERY 1 DAYS, ONGOING
     Route: 042
     Dates: start: 20220704
  3. CYCLOPHOSPHAMIDE [Suspect]
     Active Substance: CYCLOPHOSPHAMIDE
     Indication: Refractory cancer
  4. DOXORUBICIN [Suspect]
     Active Substance: DOXORUBICIN
     Indication: Neuroblastoma
     Dosage: UNK
     Route: 065
     Dates: start: 20170602, end: 20171001
  5. MESNA [Suspect]
     Active Substance: MESNA
     Indication: Neuroblastoma
     Dosage: UNK
     Route: 065
     Dates: start: 20170602, end: 20171001
  6. VENETOCLAX [Suspect]
     Active Substance: VENETOCLAX
     Indication: Recurrent cancer
     Dosage: 500 MG, EVERY 1 DAYS
     Route: 048
     Dates: start: 20220704, end: 20221102
  7. VENETOCLAX [Suspect]
     Active Substance: VENETOCLAX
     Indication: Refractory cancer
     Dosage: 500 MG, EVERY 1 DAYS
     Route: 048
     Dates: start: 20221121
  8. TOPOTECAN [Suspect]
     Active Substance: TOPOTECAN HYDROCHLORIDE
     Indication: Recurrent cancer
     Dosage: 1 MG MAXIMUM 5 DAYS EVERY 21 DAYS, EVERY 1 DAYS, ONGOING
     Route: 042
     Dates: start: 20220704
  9. TOPOTECAN [Suspect]
     Active Substance: TOPOTECAN HYDROCHLORIDE
     Indication: Refractory cancer
  10. PIPERACILLIN SODIUM\TAZOBACTAM SODIUM [Concomitant]
     Active Substance: PIPERACILLIN SODIUM\TAZOBACTAM SODIUM
     Indication: Febrile neutropenia
     Dosage: 3770 MG, EVERY 6 HOURS
     Route: 065
     Dates: start: 20220714
  11. FILGRASTIM [Concomitant]
     Active Substance: FILGRASTIM
     Indication: Chemotherapy side effect prophylaxis
     Dosage: 300 UG, EVERY 1 DAYS
     Route: 065
     Dates: start: 20220712
  12. GRAVOL [Concomitant]
     Active Substance: DIMENHYDRINATE
     Indication: Prophylaxis of nausea and vomiting
     Dosage: 50 MG, EVERY 4 DAYS
     Route: 065
     Dates: start: 20220604
  13. DEXAMETHASONE [Concomitant]
     Active Substance: DEXAMETHASONE
     Indication: Nausea
     Dosage: 4 MG, 2/DAYS
     Route: 065
     Dates: start: 20220605

REACTIONS (5)
  - Febrile neutropenia [Recovered/Resolved]
  - Pyrexia [Recovered/Resolved]
  - White blood cell count decreased [Unknown]
  - Anaemia [Unknown]
  - Platelet count decreased [Unknown]

NARRATIVE: CASE EVENT DATE: 20221101
